FAERS Safety Report 6537943-9 (Version None)
Quarter: 2010Q1

REPORT INFORMATION
  Report Type: 
  Country: None (occurrence: None)
  Receive Date: 20100114
  Receipt Date: 20100106
  Transmission Date: 20100710
  Serious: Yes (Hospitalization)
  Sender: FDA-Public Use
  Company Number: FR-ASTRAZENECA-2010SE00613

PATIENT
  Age: 21312 Day
  Sex: Female

DRUGS (7)
  1. NEXIUM [Suspect]
     Route: 048
     Dates: start: 20091030, end: 20091124
  2. COUMADIN [Suspect]
     Route: 048
     Dates: start: 20091030, end: 20091127
  3. CORDARONE [Suspect]
     Route: 048
     Dates: start: 20091031, end: 20091117
  4. MICROPAKINE [Concomitant]
     Indication: EPILEPSY
     Route: 048
  5. MICROPAKINE [Concomitant]
     Route: 048
  6. QVAR 40 [Concomitant]
  7. AIROMIR [Concomitant]

REACTIONS (2)
  - GAMMA-GLUTAMYLTRANSFERASE INCREASED [None]
  - HYPERTRANSAMINASAEMIA [None]
